FAERS Safety Report 24123338 (Version 1)
Quarter: 2024Q3

REPORT INFORMATION
  Report Type: Spontaneous
  Country: US (occurrence: US)
  Receive Date: 20240723
  Receipt Date: 20240723
  Transmission Date: 20241016
  Serious: No
  Sender: OTSUKA
  Company Number: US-OTSUKA-2023_027372

PATIENT
  Age: 30 Year
  Sex: Female

DRUGS (4)
  1. REXULTI [Suspect]
     Active Substance: BREXPIPRAZOLE
     Indication: Depression
     Dosage: 1 MG, QD
     Route: 065
     Dates: end: 20230526
  2. REXULTI [Suspect]
     Active Substance: BREXPIPRAZOLE
     Indication: Anxiety
  3. CAPLYTA [Suspect]
     Active Substance: LUMATEPERONE
     Indication: Affective disorder
     Dosage: 42 MG, QD
     Route: 065
  4. ADDERALL [Suspect]
     Active Substance: AMPHETAMINE ASPARTATE\AMPHETAMINE SULFATE\DEXTROAMPHETAMINE SACCHARATE\DEXTROAMPHETAMINE SULFATE
     Indication: Product used for unknown indication
     Dosage: 40 MG, QD (XR)
     Route: 065

REACTIONS (11)
  - Hypomania [Unknown]
  - Tachyphrenia [Unknown]
  - Ear disorder [Unknown]
  - Restless legs syndrome [Unknown]
  - Weight decreased [Unknown]
  - Hyperacusis [Unknown]
  - Insomnia [Recovering/Resolving]
  - Restlessness [Unknown]
  - Weight increased [Unknown]
  - Drug effective for unapproved indication [Unknown]
  - Therapy cessation [Unknown]

NARRATIVE: CASE EVENT DATE: 20230802
